FAERS Safety Report 13857530 (Version 1)
Quarter: 2017Q3

REPORT INFORMATION
  Report Type: Spontaneous
  Country: US (occurrence: US)
  Receive Date: 20170811
  Receipt Date: 20170811
  Transmission Date: 20171127
  Serious: Yes (Death, Other)
  Sender: FDA-Public Use
  Company Number: PHHY2017US116673

PATIENT
  Age: 79 Year
  Sex: Female

DRUGS (2)
  1. VORICONAZOLE. [Suspect]
     Active Substance: VORICONAZOLE
     Indication: BRAIN ABSCESS
     Dosage: UNK
     Route: 065
  2. FLUCYTOSINE. [Suspect]
     Active Substance: FLUCYTOSINE
     Indication: BRAIN ABSCESS
     Route: 065

REACTIONS (5)
  - Drug intolerance [Unknown]
  - Vomiting [Unknown]
  - Disease progression [Fatal]
  - Fungal infection [Fatal]
  - Nausea [Unknown]
